FAERS Safety Report 22072389 (Version 1)
Quarter: 2023Q1

REPORT INFORMATION
  Report Type: Report from Study
  Country: US (occurrence: US)
  Receive Date: 20230308
  Receipt Date: 20230308
  Transmission Date: 20230418
  Serious: No
  Sender: FDA-Public Use
  Company Number: US-PHARMING-PHAUS2023000160

PATIENT

DRUGS (1)
  1. RUCONEST [Suspect]
     Active Substance: HUMAN C1-ESTERASE INHIBITOR
     Indication: Product used for unknown indication
     Dosage: 4200 IU, AS NEEDED
     Route: 042
     Dates: start: 20220625, end: 202210

REACTIONS (4)
  - Injection site swelling [Recovered/Resolved]
  - Injection site rash [Recovered/Resolved]
  - Injection site pain [Recovered/Resolved]
  - Wheezing [Recovered/Resolved]

NARRATIVE: CASE EVENT DATE: 20221001
